FAERS Safety Report 6158398-2 (Version None)
Quarter: 2009Q2

REPORT INFORMATION
  Report Type: 
  Country: None (occurrence: None)
  Receive Date: 20090417
  Receipt Date: 20090408
  Transmission Date: 20091009
  Serious: Yes (Hospitalization)
  Sender: FDA-Public Use
  Company Number: FR-JNJFOC-20090402482

PATIENT
  Age: 49 Year
  Sex: Male

DRUGS (6)
  1. REMICADE [Suspect]
     Route: 042
  2. REMICADE [Suspect]
     Route: 042
  3. REMICADE [Suspect]
     Indication: ANKYLOSING SPONDYLITIS
     Route: 042
  4. STABLON [Concomitant]
  5. METHOCARBAMOL [Concomitant]
  6. MYOLASTIN [Concomitant]

REACTIONS (7)
  - ARTERIOSPASM CORONARY [None]
  - CHEST PAIN [None]
  - HOT FLUSH [None]
  - HYPERHIDROSIS [None]
  - INFUSION RELATED REACTION [None]
  - MALAISE [None]
  - PAIN [None]
